FAERS Safety Report 10446923 (Version 2)
Quarter: 2015Q1

REPORT INFORMATION
  Report Type: Spontaneous
  Country: US (occurrence: US)
  Receive Date: 20140911
  Receipt Date: 20150121
  Transmission Date: 20150720
  Serious: Yes (Other)
  Sender: FDA-Public Use
  Company Number: US-SA-2014SA121402

PATIENT
  Age: 64 Year
  Sex: Male

DRUGS (2)
  1. LUMIZYME [Suspect]
     Active Substance: ALGLUCOSIDASE ALFA
     Indication: GLYCOGEN STORAGE DISEASE TYPE II
     Route: 041
     Dates: start: 20060918, end: 20141222
  2. LUMIZYME [Suspect]
     Active Substance: ALGLUCOSIDASE ALFA
     Indication: GLYCOGEN STORAGE DISEASE TYPE II
     Route: 041
     Dates: start: 20060918, end: 20141222

REACTIONS (6)
  - Muscular weakness [Unknown]
  - Feeling of body temperature change [Unknown]
  - Speech disorder [Unknown]
  - Diarrhoea [Unknown]
  - Dysstasia [Unknown]
  - Condition aggravated [Unknown]
